FAERS Safety Report 8402397-4 (Version None)
Quarter: 2012Q2

REPORT INFORMATION
  Report Type: 
  Country: None (occurrence: None)
  Receive Date: 20120601
  Receipt Date: 20120522
  Transmission Date: 20120825
  Serious: Yes (Other)
  Sender: FDA-Public Use
  Company Number: US-PFIZER INC-2012124088

PATIENT
  Sex: Female

DRUGS (4)
  1. ROBITUSSIN PEAK COLD MAXIMUM STRENGTH MULTI-SYMPTOM COLD [Suspect]
     Indication: NASAL CONGESTION
     Dosage: UNK, AS NEEDED
     Route: 048
     Dates: start: 20120515
  2. PHENYLEPHRINE [Concomitant]
     Indication: SINUS HEADACHE
     Dosage: 10 MG, UNK
  3. PHENYLEPHRINE [Concomitant]
     Indication: SINUS CONGESTION
  4. ROBITUSSIN PEAK COLD MAXIMUM STRENGTH MULTI-SYMPTOM COLD [Suspect]
     Indication: COUGH

REACTIONS (5)
  - ASTHENIA [None]
  - INSOMNIA [None]
  - DRUG INEFFECTIVE [None]
  - SINUSITIS [None]
  - COUGH [None]
